FAERS Safety Report 6384027-9 (Version None)
Quarter: 2009Q4

REPORT INFORMATION
  Report Type: 
  Country: None (occurrence: None)
  Receive Date: 20091001
  Receipt Date: 20090918
  Transmission Date: 20100525
  Serious: Yes (Other)
  Sender: FDA-Public Use
  Company Number: US-PFIZER INC-2009252525

PATIENT
  Sex: Female
  Weight: 43.084 kg

DRUGS (3)
  1. XALATAN [Suspect]
     Indication: GLAUCOMA
     Dosage: 1 GTT, 1X/DAY
     Route: 047
     Dates: start: 20090803, end: 20090804
  2. XALATAN [Suspect]
     Indication: INTRAOCULAR PRESSURE INCREASED
  3. VITAMINS [Concomitant]
     Dosage: UNK

REACTIONS (2)
  - ANGINA PECTORIS [None]
  - HEART RATE INCREASED [None]
